FAERS Safety Report 4739129-7 (Version None)
Quarter: 2005Q3

REPORT INFORMATION
  Report Type: 
  Country: None (occurrence: None)
  Receive Date: 20050810
  Receipt Date: 20050421
  Transmission Date: 20060218
  Serious: No
  Sender: FDA-Public Use
  Company Number: US-GLAXOSMITHKLINE-A0555200A

PATIENT
  Age: 18 Year
  Sex: Female

DRUGS (3)
  1. PAXIL CR [Suspect]
     Dosage: 12.5MG PER DAY
     Route: 048
  2. PAXIL CR [Suspect]
     Indication: DRUG USE FOR UNKNOWN INDICATION
     Route: 048
  3. ALLEGRA [Concomitant]

REACTIONS (3)
  - DIZZINESS [None]
  - DRUG WITHDRAWAL SYNDROME [None]
  - TREMOR [None]
